FAERS Safety Report 24953672 (Version 1)
Quarter: 2025Q1

REPORT INFORMATION
  Report Type: Spontaneous
  Country: US (occurrence: US)
  Receive Date: 20250211
  Receipt Date: 20250211
  Transmission Date: 20250409
  Serious: No
  Sender: RECORDATI
  Company Number: US-RECORDATI RARE DISEASE INC.-2024008995

PATIENT

DRUGS (2)
  1. ISTURISA [Suspect]
     Active Substance: OSILODROSTAT PHOSPHATE
     Indication: Pituitary-dependent Cushing^s syndrome
     Dates: start: 20240505, end: 2024
  2. ISTURISA [Suspect]
     Active Substance: OSILODROSTAT PHOSPHATE
     Dates: start: 202407

REACTIONS (10)
  - Feeling abnormal [Recovering/Resolving]
  - Weight increased [Recovering/Resolving]
  - Oligomenorrhoea [Recovering/Resolving]
  - Cortisol increased [Recovering/Resolving]
  - Food craving [Recovering/Resolving]
  - Breast enlargement [Recovering/Resolving]
  - Abdominal distension [Recovering/Resolving]
  - Rash pruritic [Recovering/Resolving]
  - Skin discolouration [Not Recovered/Not Resolved]
  - Blood corticotrophin increased [Not Recovered/Not Resolved]

NARRATIVE: CASE EVENT DATE: 20240101
